FAERS Safety Report 5916537-X (Version None)
Quarter: 2008Q4

REPORT INFORMATION
  Report Type: 
  Country: None (occurrence: None)
  Receive Date: 20081013
  Receipt Date: 20081002
  Transmission Date: 20090506
  Serious: Yes (Death)
  Sender: FDA-Public Use
  Company Number: B0538890A

PATIENT
  Age: 54 Year
  Sex: Female

DRUGS (1)
  1. MELPHALAN [Suspect]
     Indication: AMYLOIDOSIS
     Dosage: 180MGM2 PER DAY
     Route: 042

REACTIONS (3)
  - BLOOD CREATININE INCREASED [None]
  - CARDIAC FAILURE [None]
  - CONDITION AGGRAVATED [None]
